FAERS Safety Report 4603955-5 (Version None)
Quarter: 2005Q1

REPORT INFORMATION
  Report Type: 
  Country: None (occurrence: None)
  Receive Date: 20050310
  Receipt Date: 20050304
  Transmission Date: 20050727
  Serious: Yes (Other)
  Sender: FDA-Public Use
  Company Number: JP-GLAXOSMITHKLINE-B0373950A

PATIENT
  Age: 40 Year
  Sex: Male

DRUGS (3)
  1. ZANTAC [Suspect]
     Indication: GASTRIC ULCER
     Dosage: 150MG PER DAY
     Route: 048
     Dates: start: 20000101, end: 20050228
  2. LOCHOL [Suspect]
     Indication: DRUG USE FOR UNKNOWN INDICATION
     Route: 048
  3. GASMOTIN [Suspect]
     Indication: DRUG USE FOR UNKNOWN INDICATION
     Dosage: 1.67MG THREE TIMES PER DAY
     Route: 048

REACTIONS (1)
  - CONVULSION [None]
